FAERS Safety Report 7270428-3 (Version None)
Quarter: 2011Q1

REPORT INFORMATION
  Report Type: 
  Country: None (occurrence: None)
  Receive Date: 20110202
  Receipt Date: 20110124
  Transmission Date: 20110831
  Serious: Yes (Other)
  Sender: FDA-Public Use
  Company Number: ZA-BRISTOL-MYERS SQUIBB COMPANY-14848030

PATIENT
  Age: 45 Year
  Sex: Male

DRUGS (2)
  1. COMBIVIR [Suspect]
     Indication: HIV INFECTION
     Dosage: 1DF=1 UNIT NOS
     Route: 048
     Dates: start: 20080825
  2. STOCRIN TABS [Suspect]
     Indication: HIV INFECTION
     Route: 048
     Dates: start: 20060101, end: 20090721

REACTIONS (2)
  - ELECTROCARDIOGRAM QT PROLONGED [None]
  - PALPITATIONS [None]
